FAERS Safety Report 8392574-3 (Version None)
Quarter: 2012Q2

REPORT INFORMATION
  Report Type: 
  Country: None (occurrence: None)
  Receive Date: 20120529
  Receipt Date: 20120524
  Transmission Date: 20120825
  Serious: Yes (Hospitalization)
  Sender: FDA-Public Use
  Company Number: US-BAYER-2012-051827

PATIENT
  Age: 66 Year
  Sex: Female

DRUGS (4)
  1. BETASERON [Suspect]
     Indication: RELAPSING-REMITTING MULTIPLE SCLEROSIS
     Dosage: 8 MIU, QOD
     Route: 058
     Dates: start: 19950214
  2. PREMARIN [Concomitant]
  3. LEXAPRO [Concomitant]
     Dosage: 10 MG, UNK
  4. TYLENOL ARTHRITIS [Concomitant]

REACTIONS (3)
  - PAIN IN JAW [None]
  - CORONARY ARTERY OCCLUSION [None]
  - CHEST PAIN [None]
